FAERS Safety Report 11868768 (Version 3)
Quarter: 2016Q1

REPORT INFORMATION
  Report Type: Spontaneous
  Country: PT (occurrence: PT)
  Receive Date: 20151225
  Receipt Date: 20160223
  Transmission Date: 20160526
  Serious: Yes (Other)
  Sender: FDA-Public Use
  Company Number: PT-ABBVIE-15K-130-1526103-00

PATIENT

DRUGS (1)
  1. HUMIRA [Suspect]
     Active Substance: ADALIMUMAB
     Indication: PSORIASIS
     Route: 058
     Dates: start: 20120105, end: 20151201

REACTIONS (2)
  - Infected bite [Unknown]
  - Arthropod bite [Unknown]

NARRATIVE: CASE EVENT DATE: 20151203
